FAERS Safety Report 4300972-X (Version None)
Quarter: 2004Q1

REPORT INFORMATION
  Report Type: 
  Country: None (occurrence: None)
  Receive Date: 20040219
  Receipt Date: 20040204
  Transmission Date: 20041129
  Serious: Yes (Hospitalization)
  Sender: FDA-Public Use
  Company Number: US-SHR-04-020955

PATIENT
  Age: 60 Year
  Sex: Female
  Weight: 81.6 kg

DRUGS (10)
  1. BETASERON [Suspect]
     Indication: MULTIPLE SCLEROSIS RELAPSE
     Dosage: 8 MIU, EVERY 2D, SUBCUTANEOUS
     Route: 058
     Dates: start: 20020601
  2. MIRAPLEX (PRAMIPEXOLE DIHYDROCHLORIDE) [Concomitant]
  3. FOSAMAX [Concomitant]
  4. FUROSEMIDE [Concomitant]
  5. FLOVENT [Concomitant]
  6. SINGULAIR [Concomitant]
  7. ZOLOFT [Concomitant]
  8. WELLBUTRIN [Concomitant]
  9. NEXIUM [Concomitant]
  10. PROTONIX [Concomitant]

REACTIONS (4)
  - LUNG INFILTRATION [None]
  - OEDEMA PERIPHERAL [None]
  - PYREXIA [None]
  - URINARY TRACT INFECTION [None]
